FAERS Safety Report 9322955 (Version 1)
Quarter: 2013Q2

REPORT INFORMATION
  Report Type: Spontaneous
  Country: FR (occurrence: FR)
  Receive Date: 20130603
  Receipt Date: 20130603
  Transmission Date: 20140414
  Serious: Yes (Hospitalization)
  Sender: FDA-Public Use
  Company Number: FR-ROCHE-1230652

PATIENT
  Age: 86 Year
  Sex: Female

DRUGS (7)
  1. VALIUM [Suspect]
     Indication: PRODUCT USED FOR UNKNOWN INDICATION
     Route: 048
     Dates: start: 20130216, end: 20130217
  2. LASILIX [Concomitant]
     Route: 048
  3. APROVEL [Concomitant]
     Route: 048
  4. PREVISCAN (FRANCE) [Concomitant]
     Route: 048
  5. EXELON [Concomitant]
     Route: 062
     Dates: end: 201302
  6. ZOCOR [Concomitant]
     Route: 048
  7. CACIT VITAMINE D3 [Concomitant]
     Route: 048

REACTIONS (2)
  - Somnolence [Recovered/Resolved]
  - Benzodiazepine drug level [Recovered/Resolved]
